FAERS Safety Report 14377376 (Version 9)
Quarter: 2020Q1

REPORT INFORMATION
  Report Type: Report from Study
  Country: DE (occurrence: DE)
  Receive Date: 20180111
  Receipt Date: 20200303
  Transmission Date: 20200409
  Serious: Yes (Death, Hospitalization)
  Sender: FDA-Public Use
  Company Number: DE-CELGENEUS-DEU-20180102430

PATIENT
  Age: 71 Year
  Sex: Male
  Weight: 78 kg

DRUGS (64)
  1. LEVOFLOXACIN. [Concomitant]
     Active Substance: LEVOFLOXACIN
     Route: 065
     Dates: start: 20180110, end: 20180124
  2. BISOPROLOL [Concomitant]
     Active Substance: BISOPROLOL
     Indication: HYPERTENSION
     Route: 065
     Dates: start: 2012
  3. CEFTAZIDIM [Concomitant]
     Active Substance: CEFTAZIDIME
     Indication: PNEUMONIA
     Route: 065
     Dates: start: 20180107, end: 20180107
  4. NOSCAPIN [Concomitant]
     Route: 065
     Dates: start: 20180125
  5. KALINOR BT [Concomitant]
     Active Substance: POTASSIUM CARBONATE\POTASSIUM CITRATE
     Indication: HYPOKALAEMIA
     Route: 065
     Dates: start: 20180112, end: 20180112
  6. KALINOR BT [Concomitant]
     Active Substance: POTASSIUM CARBONATE\POTASSIUM CITRATE
     Indication: PROPHYLAXIS
     Route: 065
     Dates: start: 20180113, end: 20180118
  7. ZOPLICON [Concomitant]
     Indication: INSOMNIA
     Route: 065
     Dates: start: 20180111, end: 20180111
  8. FUROSEMIDE. [Concomitant]
     Active Substance: FUROSEMIDE
     Indication: PNEUMONIA
     Route: 065
     Dates: start: 20180117, end: 20180124
  9. LINEZOLID. [Concomitant]
     Active Substance: LINEZOLID
     Indication: PNEUMONIA
     Route: 065
     Dates: start: 20180118, end: 20180118
  10. PLATELETS [Concomitant]
     Active Substance: HUMAN PLATELET, ALLOGENIC
     Dosage: 6 X10E9/L
     Route: 041
     Dates: start: 20171227, end: 20171227
  11. CEFTAZIDIM [Concomitant]
     Active Substance: CEFTAZIDIME
     Route: 065
     Dates: start: 20180108, end: 20180110
  12. KALINOR BT [Concomitant]
     Active Substance: POTASSIUM CARBONATE\POTASSIUM CITRATE
     Route: 065
     Dates: start: 20180119, end: 20180124
  13. MEROPENEM. [Concomitant]
     Active Substance: MEROPENEM
     Route: 065
     Dates: start: 20180112, end: 20180124
  14. PARACETAMOL [Concomitant]
     Active Substance: ACETAMINOPHEN
     Indication: NIGHT SWEATS
     Route: 065
     Dates: start: 20180114, end: 20180114
  15. ZOPLICON [Concomitant]
     Route: 065
     Dates: start: 20180119, end: 20180121
  16. PLATELETS [Concomitant]
     Active Substance: HUMAN PLATELET, ALLOGENIC
     Dosage: 5 X10E9/L
     Route: 041
     Dates: start: 20180129, end: 20180129
  17. RED BLOOD CELLS [Concomitant]
     Active Substance: HUMAN RED BLOOD CELL
     Dosage: 2 UNITS
     Route: 065
     Dates: start: 20180113, end: 20180113
  18. RED BLOOD CELLS [Concomitant]
     Active Substance: HUMAN RED BLOOD CELL
     Dosage: 1 UNITS
     Route: 065
     Dates: start: 20180123, end: 20180123
  19. RED BLOOD CELLS [Concomitant]
     Active Substance: HUMAN RED BLOOD CELL
     Dosage: 2 UNITS
     Route: 065
     Dates: start: 20180129, end: 20180129
  20. RED BLOOD CELLS [Concomitant]
     Active Substance: HUMAN RED BLOOD CELL
     Dosage: 2 UNITS
     Route: 065
     Dates: start: 20180206, end: 20180206
  21. RED BLOOD CELLS [Concomitant]
     Active Substance: HUMAN RED BLOOD CELL
     Dosage: 1 UNITS
     Route: 065
     Dates: start: 20171214, end: 20171214
  22. MEROPENEM. [Concomitant]
     Active Substance: MEROPENEM
     Route: 065
     Dates: start: 20180206, end: 20180209
  23. SODIUM CHLORIDE. [Concomitant]
     Active Substance: SODIUM CHLORIDE
     Route: 055
     Dates: start: 20180117, end: 20180124
  24. TORASEMIDE [Concomitant]
     Active Substance: TORSEMIDE
     Indication: HYPERTENSION
     Route: 065
     Dates: start: 20180125
  25. PLATELETS [Concomitant]
     Active Substance: HUMAN PLATELET, ALLOGENIC
     Dosage: 32 X10E9/L
     Route: 041
     Dates: start: 20180120, end: 20180120
  26. RED BLOOD CELLS [Concomitant]
     Active Substance: HUMAN RED BLOOD CELL
     Dosage: 1 UNITS
     Route: 065
     Dates: start: 20180109, end: 20180109
  27. RED BLOOD CELLS [Concomitant]
     Active Substance: HUMAN RED BLOOD CELL
     Dosage: 1 UNITS
     Route: 065
     Dates: start: 20180121, end: 20180121
  28. CEFTAZIDIM [Concomitant]
     Active Substance: CEFTAZIDIME
     Route: 065
     Dates: start: 20180111, end: 20180111
  29. AMLODIPINE [Concomitant]
     Active Substance: AMLODIPINE BESYLATE
     Indication: HYPERTENSION
     Route: 065
     Dates: start: 2012, end: 20180106
  30. AMLODIPINE [Concomitant]
     Active Substance: AMLODIPINE BESYLATE
     Route: 065
     Dates: start: 20180108, end: 20180117
  31. NOSCAPIN [Concomitant]
     Indication: PROPHYLAXIS
     Route: 065
     Dates: start: 20180112, end: 20180124
  32. MEROPENEM. [Concomitant]
     Active Substance: MEROPENEM
     Indication: PNEUMONIA
     Route: 065
     Dates: start: 20180111, end: 20180111
  33. MACROGOL [Concomitant]
     Active Substance: POLYETHYLENE GLYCOLS
     Indication: CONSTIPATION
     Route: 065
     Dates: start: 20180109, end: 20180109
  34. FRESUBIN [Concomitant]
     Active Substance: AMINO ACIDS\DEXTROSE\ELECTROLYTES NOS\SOYBEAN OIL\VITAMINS
     Indication: NUTRITIONAL SUPPLEMENTATION
     Route: 065
     Dates: start: 20180123
  35. RED BLOOD CELLS [Concomitant]
     Active Substance: HUMAN RED BLOOD CELL
     Dosage: 1 UNITS
     Route: 065
     Dates: start: 20180201, end: 20180201
  36. AG-221 [Suspect]
     Active Substance: ENASIDENIB
     Indication: ACUTE MYELOID LEUKAEMIA
     Route: 065
  37. LEVOFLOXACIN. [Concomitant]
     Active Substance: LEVOFLOXACIN
     Indication: INFECTION PROPHYLAXIS
     Route: 065
     Dates: start: 201712, end: 20180106
  38. LEVOFLOXACIN. [Concomitant]
     Active Substance: LEVOFLOXACIN
     Indication: PNEUMONIA
     Route: 065
     Dates: start: 20180109, end: 20180109
  39. NOSCAPIN [Concomitant]
     Indication: PNEUMONIA
     Route: 065
     Dates: start: 20180111, end: 20180111
  40. VANCOMYCIN [Concomitant]
     Active Substance: VANCOMYCIN
     Route: 065
     Dates: start: 20180112, end: 20180117
  41. AMPHOTERICIN B. [Concomitant]
     Active Substance: AMPHOTERICIN B
     Route: 065
     Dates: start: 20180125
  42. SODIUM CHLORIDE. [Concomitant]
     Active Substance: SODIUM CHLORIDE
     Indication: PNEUMONIA
     Route: 055
     Dates: start: 20180110, end: 20180110
  43. PARACETAMOL [Concomitant]
     Active Substance: ACETAMINOPHEN
     Indication: PNEUMONIA
     Route: 065
     Dates: start: 20180108, end: 20180111
  44. PLATELETS [Concomitant]
     Active Substance: HUMAN PLATELET, ALLOGENIC
     Dosage: 13 X10E9/L
     Route: 041
     Dates: start: 20180119, end: 20180119
  45. PLATELETS [Concomitant]
     Active Substance: HUMAN PLATELET, ALLOGENIC
     Dosage: 21 X10E9/L
     Route: 041
     Dates: start: 20180207, end: 20180207
  46. MEROPENEM. [Concomitant]
     Active Substance: MEROPENEM
     Route: 065
     Dates: start: 20180210, end: 20180212
  47. AMPHOTERICIN B. [Concomitant]
     Active Substance: AMPHOTERICIN B
     Indication: PROPHYLAXIS
     Route: 065
     Dates: start: 20180107, end: 20180113
  48. LACTULOSE. [Concomitant]
     Active Substance: LACTULOSE
     Indication: CONSTIPATION
     Route: 065
     Dates: start: 20180109, end: 20180109
  49. LINEZOLID. [Concomitant]
     Active Substance: LINEZOLID
     Route: 065
     Dates: start: 20180119, end: 20180124
  50. PLATELETS [Concomitant]
     Active Substance: HUMAN PLATELET, ALLOGENIC
     Indication: PLATELET COUNT DECREASED
     Dosage: 6 X10E9/L
     Route: 041
     Dates: start: 20180107, end: 20180107
  51. PLATELETS [Concomitant]
     Active Substance: HUMAN PLATELET, ALLOGENIC
     Dosage: 10 X10E9/L
     Route: 041
     Dates: start: 20180116, end: 20180116
  52. LEVOFLOXACIN. [Concomitant]
     Active Substance: LEVOFLOXACIN
     Route: 065
     Dates: start: 20180125
  53. VANCOMYCIN [Concomitant]
     Active Substance: VANCOMYCIN
     Route: 065
     Dates: start: 20180118, end: 20180118
  54. LINEZOLID. [Concomitant]
     Active Substance: LINEZOLID
     Route: 065
     Dates: start: 20180125, end: 20180127
  55. PLATELETS [Concomitant]
     Active Substance: HUMAN PLATELET, ALLOGENIC
     Dosage: 7 X10E9/L
     Route: 041
     Dates: start: 20180206, end: 20180206
  56. RED BLOOD CELLS [Concomitant]
     Active Substance: HUMAN RED BLOOD CELL
     Indication: ANAEMIA
     Dosage: 1 UNITS
     Route: 065
     Dates: start: 20180107, end: 20180107
  57. VANCOMYCIN [Concomitant]
     Active Substance: VANCOMYCIN
     Indication: PNEUMONIA
     Route: 065
     Dates: start: 20180111, end: 20180111
  58. PARACETAMOL [Concomitant]
     Active Substance: ACETAMINOPHEN
     Route: 065
     Dates: start: 20180117, end: 20180117
  59. PARACETAMOL [Concomitant]
     Active Substance: ACETAMINOPHEN
     Route: 065
     Dates: start: 20171214, end: 20171216
  60. PLATELETS [Concomitant]
     Active Substance: HUMAN PLATELET, ALLOGENIC
     Dosage: 8 X10E9/L
     Route: 041
     Dates: start: 20180112, end: 20180112
  61. PLATELETS [Concomitant]
     Active Substance: HUMAN PLATELET, ALLOGENIC
     Dosage: 14 X10E9/L
     Route: 041
     Dates: start: 20180210, end: 20180210
  62. RED BLOOD CELLS [Concomitant]
     Active Substance: HUMAN RED BLOOD CELL
     Dosage: 2 UNITS
     Route: 065
     Dates: start: 20180209, end: 20180209
  63. RED BLOOD CELLS [Concomitant]
     Active Substance: HUMAN RED BLOOD CELL
     Dosage: 2 UNITS
     Route: 065
     Dates: start: 20171220, end: 20171220
  64. RED BLOOD CELLS [Concomitant]
     Active Substance: HUMAN RED BLOOD CELL
     Dosage: 2 UNITS
     Route: 065
     Dates: start: 20171229, end: 20171229

REACTIONS (3)
  - Pneumonia fungal [Fatal]
  - Epistaxis [Recovered/Resolved]
  - Respiratory failure [Fatal]

NARRATIVE: CASE EVENT DATE: 20180107
